FAERS Safety Report 11258851 (Version 1)
Quarter: 2015Q3

REPORT INFORMATION
  Report Type: Spontaneous
  Country: DE (occurrence: None)
  Receive Date: 20150708
  Receipt Date: 20150708
  Transmission Date: 20151125
  Serious: Yes (Hospitalization)
  Sender: FDA-Public Use
  Company Number: 1507DEU000416

PATIENT
  Age: 53 Year
  Sex: Male

DRUGS (2)
  1. CYANOCOBALAMIN (+) FOLIC ACID (CYANOCOBALAMIN, FOLIC ACID) [Concomitant]
  2. KEIMAX (CEFTIBUTEN) CAPSULE, 400MG [Suspect]
     Active Substance: CEFTIBUTEN
     Indication: OTITIS MEDIA
     Route: 048
     Dates: start: 20150622, end: 20150624

REACTIONS (4)
  - Diarrhoea [None]
  - Headache [None]
  - Nausea [None]
  - Vomiting [None]

NARRATIVE: CASE EVENT DATE: 201506
